FAERS Safety Report 5362389-9 (Version None)
Quarter: 2007Q2

REPORT INFORMATION
  Report Type: 
  Country: None (occurrence: None)
  Receive Date: 20070619
  Receipt Date: 20070531
  Transmission Date: 20071010
  Serious: Yes (Other)
  Sender: FDA-Public Use
  Company Number: US-ASTRAZENECA-2006UW27889

PATIENT
  Age: 17435 Day
  Sex: Male
  Weight: 93.2 kg

DRUGS (8)
  1. SEROQUEL [Suspect]
     Indication: DEPRESSION
     Route: 048
     Dates: start: 19990226
  2. SEROQUEL [Suspect]
     Indication: SCHIZOPHRENIA
     Route: 048
     Dates: start: 19990226
  3. SEROQUEL [Suspect]
     Indication: BIPOLAR DISORDER
     Route: 048
     Dates: start: 19990226
  4. SEROQUEL [Suspect]
     Route: 048
     Dates: start: 20020605
  5. SEROQUEL [Suspect]
     Route: 048
     Dates: start: 20020605
  6. SEROQUEL [Suspect]
     Route: 048
     Dates: start: 20020605
  7. HALDOL [Concomitant]
     Dates: start: 19850101
  8. METHADONE HCL [Concomitant]
     Dates: start: 19820101, end: 20050101

REACTIONS (3)
  - BLINDNESS [None]
  - DIABETES MELLITUS NON-INSULIN-DEPENDENT [None]
  - OBESITY [None]
